FAERS Safety Report 15449879 (Version 1)
Quarter: 2018Q4

REPORT INFORMATION
  Report Type: Spontaneous
  Country: US (occurrence: US)
  Receive Date: 20181001
  Receipt Date: 20181001
  Transmission Date: 20190204
  Serious: Yes (Hospitalization, Congenital Anomaly, Other)
  Sender: FDA-Public Use
  Company Number: US-DRREDDYS-USA/USA/18/0104310

PATIENT

DRUGS (1)
  1. ISOTRETINOIN NOT OTHERWISE SPECIFIED [Suspect]
     Active Substance: ISOTRETINOIN
     Indication: PRODUCT USED FOR UNKNOWN INDICATION
     Route: 065

REACTIONS (4)
  - Truncus arteriosus persistent [Recovered/Resolved]
  - Aorta hypoplasia [Recovered/Resolved]
  - Foetal exposure during pregnancy [Unknown]
  - Ventricular septal defect [Recovered/Resolved]
